FAERS Safety Report 13515039 (Version 5)
Quarter: 2017Q4

REPORT INFORMATION
  Report Type: Report from Study
  Country: US (occurrence: US)
  Receive Date: 20170504
  Receipt Date: 20171010
  Transmission Date: 20180320
  Serious: Yes (Other)
  Sender: FDA-Public Use
  Company Number: PHEH2014US022821

PATIENT
  Sex: Female

DRUGS (1)
  1. GILENYA [Suspect]
     Active Substance: FINGOLIMOD HYDROCHLORIDE
     Indication: MULTIPLE SCLEROSIS
     Dosage: 0.5 MG, QD
     Route: 048
     Dates: end: 2017

REACTIONS (6)
  - Vitreous floaters [Unknown]
  - Malaise [Unknown]
  - Visual impairment [Unknown]
  - Vitreous floaters [Recovered/Resolved]
  - Depression [Unknown]
  - Macular oedema [Unknown]
